FAERS Safety Report 9701277 (Version 1)
Quarter: 2013Q4

REPORT INFORMATION
  Report Type: Spontaneous
  Country: US (occurrence: US)
  Receive Date: 20131121
  Receipt Date: 20131121
  Transmission Date: 20140711
  Serious: No
  Sender: FDA-Public Use
  Company Number: US-GILEAD-2008-0016211

PATIENT
  Sex: Female
  Weight: 58.97 kg

DRUGS (12)
  1. LETAIRIS [Suspect]
     Indication: PULMONARY ARTERIAL HYPERTENSION
     Route: 048
  2. REVATIO [Concomitant]
     Route: 048
  3. REMODULIN [Concomitant]
     Dosage: CONT.
     Route: 042
  4. FUROSEMIDE [Concomitant]
     Dosage: UD
     Route: 048
  5. ALDACTONE [Concomitant]
     Route: 048
  6. WARFARIN SODIUM [Concomitant]
     Route: 048
  7. DIGITEK [Concomitant]
     Route: 048
  8. PROTONIX [Concomitant]
     Route: 048
  9. DARVOCET N-100 [Concomitant]
     Dosage: PRN
     Route: 048
  10. SODIUM CHLORIDE [Concomitant]
     Dosage: QOD
     Route: 042
  11. SODIUM CHLORIDE [Concomitant]
     Dosage: CONT.
     Route: 042
  12. MULTIVITAMIN [Concomitant]
     Route: 048

REACTIONS (1)
  - Aspartate aminotransferase increased [Unknown]
